FAERS Safety Report 20983929 (Version 1)
Quarter: 2022Q2

REPORT INFORMATION
  Report Type: Spontaneous
  Country: US (occurrence: None)
  Receive Date: 20220621
  Receipt Date: 20220621
  Transmission Date: 20220721
  Serious: No
  Sender: FDA-Public Use
  Company Number: US-Encube-000191

PATIENT
  Sex: Female

DRUGS (2)
  1. TRIAMCINOLONE ACETONIDE [Suspect]
     Active Substance: TRIAMCINOLONE ACETONIDE
     Indication: Pigmentation disorder
     Dates: start: 202205
  2. TAZAROTENE [Suspect]
     Active Substance: TAZAROTENE
     Indication: Pigmentation disorder
     Dates: start: 202205

REACTIONS (4)
  - Limb injury [Unknown]
  - Product quality issue [Unknown]
  - Pain in extremity [Unknown]
  - Electric shock sensation [Unknown]

NARRATIVE: CASE EVENT DATE: 20220609
